FAERS Safety Report 21134671 (Version 2)
Quarter: 2022Q3

REPORT INFORMATION
  Report Type: Spontaneous
  Country: CZ (occurrence: None)
  Receive Date: 20220727
  Receipt Date: 20220729
  Transmission Date: 20221027
  Serious: Yes (Life-Threatening, Hospitalization, Other)
  Sender: FDA-Public Use
  Company Number: 2022A266110

PATIENT
  Sex: Female
  Weight: 61 kg

DRUGS (5)
  1. IMFINZI [Suspect]
     Active Substance: DURVALUMAB
     Route: 042
  2. PREDNISONE [Concomitant]
     Active Substance: PREDNISONE
     Indication: Autoimmune haemolytic anaemia
     Route: 065
  3. COVID VACCINE [Concomitant]
  4. COVID VACCINE [Concomitant]
  5. COVID VACCINE [Concomitant]

REACTIONS (1)
  - Autoimmune haemolytic anaemia [Recovering/Resolving]
